FAERS Safety Report 5309513-1 (Version None)
Quarter: 2007Q2

REPORT INFORMATION
  Report Type: 
  Country: None (occurrence: None)
  Receive Date: 20070427
  Receipt Date: 20060323
  Transmission Date: 20071010
  Serious: No
  Sender: FDA-Public Use
  Company Number: US-GLAXOSMITHKLINE-A0598833A

PATIENT
  Age: 32 Year
  Sex: Female

DRUGS (2)
  1. AMERGE [Suspect]
     Indication: MIGRAINE
     Dosage: 2.5MG PER DAY
     Route: 048
     Dates: start: 20060323, end: 20060323
  2. NO CONCURRENT MEDICATION [Concomitant]

REACTIONS (3)
  - FLUSHING [None]
  - HYPOAESTHESIA [None]
  - SENSATION OF HEAVINESS [None]
